FAERS Safety Report 5776982-2 (Version None)
Quarter: 2008Q2

REPORT INFORMATION
  Report Type: 
  Country: None (occurrence: None)
  Receive Date: 20080617
  Receipt Date: 20080617
  Transmission Date: 20081010
  Serious: Yes (Life-Threatening)
  Sender: FDA-Public Use
  Company Number: None

PATIENT
  Sex: Female
  Weight: 65 kg

DRUGS (18)
  1. CEFEPIME [Suspect]
     Indication: BACTERAEMIA
     Dosage: 2 GRAMS Q8H IV
     Route: 042
     Dates: start: 20080219, end: 20080227
  2. CEFEPIME [Suspect]
     Indication: PNEUMONIA
     Dosage: 2 GRAMS Q8H IV
     Route: 042
     Dates: start: 20080219, end: 20080227
  3. CEFEPIME [Suspect]
     Indication: BACTERAEMIA
     Dosage: 2 GRAMS Q8H IV
     Route: 042
     Dates: start: 20080307, end: 20080312
  4. CEFEPIME [Suspect]
     Indication: PNEUMONIA
     Dosage: 2 GRAMS Q8H IV
     Route: 042
     Dates: start: 20080307, end: 20080312
  5. BACLOFEN [Concomitant]
  6. DIPHENOXALATE/ATROPINE [Concomitant]
  7. EPO [Concomitant]
  8. GABAPENTIN [Concomitant]
  9. INSULIN [Concomitant]
  10. LACTOBACILLUS [Concomitant]
  11. LANSOPRAZOLE [Concomitant]
  12. LEVOTHYROXINE SODIUM [Concomitant]
  13. LINEZOLID [Concomitant]
  14. MEROPENEM [Concomitant]
  15. METRONIDAZOLE HCL [Concomitant]
  16. MORPHINE [Concomitant]
  17. NYSTATIN [Concomitant]
  18. OXYCODONE HCL [Concomitant]

REACTIONS (2)
  - RASH [None]
  - SKIN EXFOLIATION [None]
